FAERS Safety Report 11185167 (Version 1)
Quarter: 2015Q2

REPORT INFORMATION
  Report Type: Spontaneous
  Country: BR (occurrence: BR)
  Receive Date: 20150612
  Receipt Date: 20150612
  Transmission Date: 20150821
  Serious: Yes (Other)
  Sender: FDA-Public Use
  Company Number: BR-GALDERMA-BR15004385

PATIENT
  Sex: Female
  Weight: 48 kg

DRUGS (2)
  1. DIFFERIN [Suspect]
     Active Substance: ADAPALENE
     Indication: EPHELIDES
  2. DIFFERIN [Suspect]
     Active Substance: ADAPALENE
     Indication: ACNE
     Dosage: 0.3%
     Route: 061
     Dates: start: 2010

REACTIONS (3)
  - Product use issue [Recovering/Resolving]
  - Blepharitis [Recovering/Resolving]
  - Keratitis [Recovering/Resolving]

NARRATIVE: CASE EVENT DATE: 2010
